FAERS Safety Report 7897630-1 (Version None)
Quarter: 2011Q4

REPORT INFORMATION
  Report Type: 
  Country: None (occurrence: None)
  Receive Date: 20111028
  Receipt Date: 20110728
  Transmission Date: 20120403
  Serious: Yes (Life-Threatening)
  Sender: FDA-Public Use
  Company Number: PHEH2008US10936

PATIENT
  Sex: Female

DRUGS (8)
  1. ATIVAN (LORAZEPAN) [Concomitant]
  2. OXCARBAZEPINE (OXVARBAZEPINE) UNKNOWN [Suspect]
  3. THYROID THERAPY (NO INGREDIENTS/SUBSTANCES) [Concomitant]
  4. VITAMIN B (NO INDGREDIDENTS/SUBSTANCES) [Concomitant]
  5. ANTITHISTAMINES (NO INGREDIENTS/SUBSTANCES) [Concomitant]
  6. TRILEPTAL [Suspect]
     Dosage: 300 MG, 5QD; 300 MG, 7QD
     Dates: start: 20070101
  7. ZOLOFT [Concomitant]
  8. MULTIVITAMINS (ASCORBIC ACID, ERGOCALCIFEROL, FOLIC ACID, NICOTINAMIDE [Concomitant]

REACTIONS (8)
  - MENTAL IMPAIRMENT [None]
  - GAIT DISTURBANCE [None]
  - MALAISE [None]
  - FEELING ABNORMAL [None]
  - PAIN [None]
  - DRUG INEFFECTIVE [None]
  - HEADACHE [None]
  - DRUG HYPERSENSITIVITY [None]
